FAERS Safety Report 13393623 (Version 5)
Quarter: 2018Q1

REPORT INFORMATION
  Report Type: Spontaneous
  Country: US (occurrence: US)
  Receive Date: 20170331
  Receipt Date: 20180126
  Transmission Date: 20180508
  Serious: Yes (Hospitalization, Other)
  Sender: FDA-Public Use
  Company Number: US-PFIZER INC-2017140137

PATIENT
  Age: 63 Year
  Sex: Female

DRUGS (1)
  1. XELJANZ [Suspect]
     Active Substance: TOFACITINIB CITRATE
     Dosage: 5 MG, UNK
     Dates: start: 201405

REACTIONS (11)
  - Stress [Unknown]
  - Condition aggravated [Unknown]
  - Hypertension [Unknown]
  - Fall [Unknown]
  - Arthralgia [Unknown]
  - Atrial fibrillation [Unknown]
  - Hypotension [Unknown]
  - Meniscus injury [Unknown]
  - Disease recurrence [Unknown]
  - Heart rate increased [Unknown]
  - Drug ineffective [Unknown]

NARRATIVE: CASE EVENT DATE: 2017
